FAERS Safety Report 18634692 (Version 1)
Quarter: 2020Q4

REPORT INFORMATION
  Report Type: Spontaneous
  Country: US (occurrence: US)
  Receive Date: 20201218
  Receipt Date: 20201218
  Transmission Date: 20210114
  Serious: No
  Sender: FDA-Public Use
  Company Number: US-GALDERMA-US2020031872

PATIENT
  Age: 15 Year
  Sex: Female

DRUGS (6)
  1. PROACTIV REDNESS RELIEF SERUM [Concomitant]
     Indication: ERYTHEMA
     Route: 061
     Dates: start: 2019, end: 202005
  2. PROACTIV MD ADAPALENE ACNE TREATMENT [Suspect]
     Active Substance: ADAPALENE
     Indication: ERYTHEMA
     Dosage: 0.1%
     Route: 061
     Dates: start: 2019, end: 202005
  3. PROACTIV MD DEEP CLEANSING FACE WASH [Concomitant]
     Active Substance: COSMETICS
     Indication: ERYTHEMA
     Route: 061
     Dates: start: 2019, end: 202005
  4. PROACTIV MOISTURE REPAIR [Concomitant]
     Active Substance: COSMETICS
     Indication: ERYTHEMA
     Route: 061
     Dates: start: 2019, end: 202005
  5. PROACTIV AMAZONIAN CLAY MASK [Concomitant]
     Indication: ERYTHEMA
     Route: 061
     Dates: start: 2019, end: 202005
  6. PROACTIV RENEWING CLEANSER [Concomitant]
     Active Substance: BENZOYL PEROXIDE
     Indication: ERYTHEMA
     Route: 061
     Dates: start: 2019, end: 202005

REACTIONS (7)
  - Dry skin [Recovered/Resolved]
  - Pruritus [Recovered/Resolved]
  - Skin irritation [Recovered/Resolved]
  - Product use in unapproved indication [Recovered/Resolved]
  - Overdose [Recovered/Resolved]
  - Erythema [Recovered/Resolved]
  - Inappropriate schedule of product administration [Recovered/Resolved]

NARRATIVE: CASE EVENT DATE: 2019
